FAERS Safety Report 6681572-3 (Version None)
Quarter: 2010Q2

REPORT INFORMATION
  Report Type: 
  Country: None (occurrence: None)
  Receive Date: 20100414
  Receipt Date: 20100413
  Transmission Date: 20101027
  Serious: Yes (Death, Hospitalization)
  Sender: FDA-Public Use
  Company Number: PHHY2010GB17955

PATIENT
  Sex: Male

DRUGS (5)
  1. CLOZARIL [Suspect]
     Indication: SCHIZOPHRENIA
     Dosage: 600 MG DAILY
     Route: 048
     Dates: start: 20040518
  2. VALPROATE SODIUM [Concomitant]
     Indication: AFFECTIVE DISORDER
     Dosage: 600 MG, BID
     Route: 048
  3. ARIPIPRAZOLE [Concomitant]
     Indication: SCHIZOPHRENIA
     Dosage: 15 MG DAILY
     Route: 048
     Dates: start: 20080418
  4. SIMVASTATIN [Concomitant]
     Indication: BLOOD CHOLESTEROL INCREASED
     Dosage: UNK
     Route: 048
  5. ATENOLOL [Concomitant]
     Dosage: UNK
     Route: 048

REACTIONS (6)
  - ABDOMINAL PAIN [None]
  - CONSTIPATION [None]
  - INTESTINAL ISCHAEMIA [None]
  - MALAISE [None]
  - PANCREATITIS NECROTISING [None]
  - WEIGHT INCREASED [None]
